FAERS Safety Report 11186262 (Version 2)
Quarter: 2015Q2

REPORT INFORMATION
  Report Type: Spontaneous
  Country: US (occurrence: US)
  Receive Date: 20150612
  Receipt Date: 20150625
  Transmission Date: 20150821
  Serious: Yes (Hospitalization)
  Sender: FDA-Public Use
  Company Number: US-ACTELION-A-NJ2015-119258

PATIENT
  Age: 37 Year
  Sex: Male

DRUGS (4)
  1. REMODULIN [Concomitant]
     Active Substance: TREPROSTINIL
  2. COUMADIN [Concomitant]
     Active Substance: WARFARIN SODIUM
  3. ADCIRCA [Concomitant]
     Active Substance: TADALAFIL
  4. TRACLEER [Suspect]
     Active Substance: BOSENTAN\BOSENTAN MONOHYDRATE
     Indication: PULMONARY ARTERIAL HYPERTENSION
     Dosage: 125 MG, BID
     Route: 048

REACTIONS (7)
  - Fluid retention [Recovering/Resolving]
  - Abdominal distension [Recovering/Resolving]
  - Oedema [Recovering/Resolving]
  - Fluid overload [Recovering/Resolving]
  - Pulmonary arterial hypertension [Unknown]
  - Pain [Recovering/Resolving]
  - Weight increased [Recovering/Resolving]
